FAERS Safety Report 17185074 (Version 3)
Quarter: 2020Q2

REPORT INFORMATION
  Report Type: Spontaneous
  Country: FI (occurrence: FI)
  Receive Date: 20191220
  Receipt Date: 20200521
  Transmission Date: 20200713
  Serious: Yes (Other)
  Sender: FDA-Public Use
  Company Number: FI-PFIZER INC-2019545729

PATIENT
  Sex: Female

DRUGS (6)
  1. PLAVIX [Suspect]
     Active Substance: CLOPIDOGREL BISULFATE
     Indication: CEREBROVASCULAR ACCIDENT
     Dosage: UNK
  2. ROSUVASTATIN. [Suspect]
     Active Substance: ROSUVASTATIN
     Indication: PAIN
  3. ROSUVASTATIN. [Suspect]
     Active Substance: ROSUVASTATIN
     Indication: CEREBROVASCULAR ACCIDENT
     Dosage: 10 MG, 1X/DAY
     Dates: start: 20190715, end: 20191006
  4. PRIMASPAN [Suspect]
     Active Substance: ASPIRIN
     Indication: CEREBROVASCULAR ACCIDENT
     Dosage: UNK
  5. PRIMASPAN [Suspect]
     Active Substance: ASPIRIN
     Dosage: UNK
     Route: 065
  6. AMLODIPINE BESILATE [Suspect]
     Active Substance: AMLODIPINE BESYLATE
     Indication: CEREBROVASCULAR ACCIDENT
     Dosage: UNK

REACTIONS (27)
  - Ulcer [Recovering/Resolving]
  - Abdominal discomfort [Recovering/Resolving]
  - Dizziness [Recovering/Resolving]
  - Swelling [Not Recovered/Not Resolved]
  - Muscle injury [Not Recovered/Not Resolved]
  - Rectal haemorrhage [Recovering/Resolving]
  - Alopecia [Recovering/Resolving]
  - Dry skin [Recovering/Resolving]
  - Feeling abnormal [Recovering/Resolving]
  - Insomnia [Not Recovered/Not Resolved]
  - Pain [Not Recovered/Not Resolved]
  - Constipation [Recovering/Resolving]
  - Dry mouth [Recovering/Resolving]
  - Musculoskeletal pain [Not Recovered/Not Resolved]
  - Fatigue [Not Recovered/Not Resolved]
  - Taste disorder [Recovering/Resolving]
  - Chest pain [Recovering/Resolving]
  - Memory impairment [Recovering/Resolving]
  - Musculoskeletal stiffness [Recovering/Resolving]
  - Weight increased [Recovering/Resolving]
  - Contusion [Recovering/Resolving]
  - Myalgia [Not Recovered/Not Resolved]
  - Abdominal pain [Recovering/Resolving]
  - Photosensitivity reaction [Recovering/Resolving]
  - Nasal congestion [Recovering/Resolving]
  - Epistaxis [Recovering/Resolving]
  - Erythema [Recovering/Resolving]
